FAERS Safety Report 14311371 (Version 1)
Quarter: 2017Q4

REPORT INFORMATION
  Report Type: Spontaneous
  Country: US (occurrence: US)
  Receive Date: 20171221
  Receipt Date: 20171221
  Transmission Date: 20180321
  Serious: No
  Sender: FDA-Public Use
  Company Number: US-NOVEN PHARMACEUTICALS, INC.-US2017000985

PATIENT

DRUGS (4)
  1. MINIVELLE [Suspect]
     Active Substance: ESTRADIOL
     Indication: HORMONE REPLACEMENT THERAPY
     Dosage: 0.025 MG, UNKNOWN
     Route: 062
  2. MINIVELLE [Suspect]
     Active Substance: ESTRADIOL
     Dosage: CUTTING 0.05 MG INTO HALF, UNKNOWN
     Route: 062
     Dates: end: 201707
  3. PROGESTERONE. [Concomitant]
     Active Substance: PROGESTERONE
     Dosage: UNK
     Dates: end: 2017
  4. MINIVELLE [Suspect]
     Active Substance: ESTRADIOL
     Dosage: 0.0375 MG, UNKNOWN
     Route: 062

REACTIONS (13)
  - Off label use [Unknown]
  - Expired product administered [Recovered/Resolved]
  - Drug dose omission [Not Recovered/Not Resolved]
  - Stress [Unknown]
  - Hot flush [Unknown]
  - Weight increased [Recovered/Resolved]
  - Wrong technique in product usage process [Recovered/Resolved]
  - Therapeutic response unexpected [Unknown]
  - Chest discomfort [Unknown]
  - Drug dispensing error [Recovered/Resolved]
  - Hunger [Unknown]
  - Chest pain [Unknown]
  - Hyperhidrosis [Unknown]

NARRATIVE: CASE EVENT DATE: 201707
